FAERS Safety Report 10054978 (Version 1)
Quarter: 2014Q2

REPORT INFORMATION
  Report Type: Spontaneous
  Country: US (occurrence: US)
  Receive Date: 20140402
  Receipt Date: 20140402
  Transmission Date: 20141212
  Serious: No
  Sender: FDA-Public Use
  Company Number: US-009507513-1403USA013117

PATIENT
  Sex: Female

DRUGS (2)
  1. PEGINTRON [Suspect]
     Indication: ESSENTIAL THROMBOCYTHAEMIA
     Dosage: UNK UNK, QOW
     Dates: start: 201303
  2. PEGINTRON [Suspect]
     Dosage: UNK UNK, QW
     Dates: start: 20120202, end: 201303

REACTIONS (5)
  - Red blood cell count decreased [Not Recovered/Not Resolved]
  - Headache [Not Recovered/Not Resolved]
  - Back pain [Not Recovered/Not Resolved]
  - Palpitations [Not Recovered/Not Resolved]
  - White blood cell count decreased [Not Recovered/Not Resolved]
